FAERS Safety Report 10995551 (Version 4)
Quarter: 2015Q4

REPORT INFORMATION
  Report Type: Spontaneous
  Country: US (occurrence: US)
  Receive Date: 20150407
  Receipt Date: 20151116
  Transmission Date: 20160304
  Serious: Yes (Hospitalization, Disabling, Other)
  Sender: FDA-Public Use
  Company Number: US-PFIZER INC-2015118705

PATIENT
  Age: 36 Year
  Sex: Male
  Weight: 91 kg

DRUGS (49)
  1. HYDROCHLOROTHIAZIDE. [Concomitant]
     Active Substance: HYDROCHLOROTHIAZIDE
     Dosage: 25 MG, 1X/DAY
     Route: 048
  2. MIRTAZAPINE. [Concomitant]
     Active Substance: MIRTAZAPINE
     Dosage: 30 MG, 1X/DAY (1 TABLET BEFORE BEDTIME EVERY MORNING ORALLY ONCE A DAY)
     Route: 048
  3. HUMULIN N [Concomitant]
     Active Substance: INSULIN HUMAN
     Dosage: 10 IU, UNK
     Route: 058
  4. LIPITOR [Concomitant]
     Active Substance: ATORVASTATIN CALCIUM
     Dosage: 40 MG, 1X/DAY
     Route: 048
  5. ZANTAC [Concomitant]
     Active Substance: RANITIDINE HYDROCHLORIDE
     Dosage: 150 MG, 2X/DAY
     Route: 048
  6. AMBIEN [Concomitant]
     Active Substance: ZOLPIDEM TARTRATE
     Dosage: 5 MG, UNK
  7. MECLIZINE [Concomitant]
     Active Substance: MECLIZINE\MECLIZINE HYDROCHLORIDE
     Dosage: 12.5 MG, UNK
  8. TEGRETOL [Concomitant]
     Active Substance: CARBAMAZEPINE
     Dosage: UNK
  9. ZOCOR [Concomitant]
     Active Substance: SIMVASTATIN
     Dosage: UNK
  10. METFORMIN HCL [Concomitant]
     Active Substance: METFORMIN HYDROCHLORIDE
     Dosage: 1000 MG, 2X/DAY
     Route: 048
  11. CARBAMAZEPINE. [Concomitant]
     Active Substance: CARBAMAZEPINE
     Dosage: 200 MG, 2X/DAY
     Route: 048
  12. PROCTOSOL HC [Concomitant]
     Dosage: 2.5 %, 2X/DAY (1 APPLICATION TO AFFECTED AREA RECTAL )
     Route: 054
  13. RENEURON [Concomitant]
     Dosage: UNK
  14. DEPAKOTE [Concomitant]
     Active Substance: DIVALPROEX SODIUM
     Dosage: UNK
     Dates: start: 20010202, end: 20010402
  15. LEVETIRACETAM. [Concomitant]
     Active Substance: LEVETIRACETAM
     Dosage: 500 MG, 2X/DAY
     Route: 048
  16. KETOPROFEN. [Concomitant]
     Active Substance: KETOPROFEN
     Dosage: 75 MG, UNK
  17. ANUSOL NOS [Concomitant]
     Active Substance: BALSAM PERU\BENZYL BENZOATE\BISMUTH HYDROXIDE\BISMUTH SUBGALLATE\HYDROCORTISONE ACETATE\ZINC OXIDE
     Dosage: 1 RECTALLY AT BED TIME)
     Route: 054
  18. DEPAKENE [Concomitant]
     Active Substance: VALPROIC ACID
     Dosage: 750 MG, 2X/DAY
     Route: 048
  19. HUMULIN R [Concomitant]
     Active Substance: INSULIN HUMAN
     Dosage: 10 IU, UNK
     Route: 058
  20. ZYPREXA [Concomitant]
     Active Substance: OLANZAPINE
     Dosage: 20 MG, UNK
     Route: 048
  21. INSULIN [Concomitant]
     Active Substance: INSULIN NOS
     Dosage: UNK
  22. LISINOPRIL. [Concomitant]
     Active Substance: LISINOPRIL
     Dosage: 20 MG, 1X/DAY
     Route: 048
  23. ATORVASTATIN CALCIUM. [Concomitant]
     Active Substance: ATORVASTATIN CALCIUM
     Dosage: 40 MG, 1X/DAY
     Route: 048
  24. VISTARIL [Concomitant]
     Active Substance: HYDROXYZINE PAMOATE
     Dosage: 50 MG, UNK (AT BED TIME)
     Route: 048
  25. KEPPRA [Concomitant]
     Active Substance: LEVETIRACETAM
     Dosage: 200 MG, 2X/DAY
     Route: 048
  26. LOVENOX HP [Concomitant]
     Dosage: UNK
  27. ZOLOFT [Suspect]
     Active Substance: SERTRALINE HYDROCHLORIDE
     Indication: DEPRESSION
     Dosage: 150 MG, UNK
     Dates: start: 1996, end: 2007
  28. SERTRALINE HCL [Concomitant]
     Active Substance: SERTRALINE HYDROCHLORIDE
     Dosage: 100 MG, 1X/DAY
     Route: 048
  29. SKELAXINE [Concomitant]
     Dosage: 400 MG, UNK
  30. TYLENOL [Concomitant]
     Active Substance: ACETAMINOPHEN
     Indication: PAIN
     Dosage: 650 MG, DAILY
     Route: 048
  31. VITAMIN B COMPLEX [Concomitant]
     Active Substance: CYANOCOBALAMIN\DEXPANTHENOL\NIACINAMIDE\PYRIDOXINE HYDROCHLORIDE\RIBOFLAVIN 5^-PHOSPHATE SODIUM\THIAMINE HYDROCHLORIDE\VITAMIN B COMPLEX
     Dosage: 1 DF, DAILY
  32. ASA [Concomitant]
     Active Substance: ASPIRIN
     Dosage: UNK
  33. COLACE [Concomitant]
     Active Substance: DOCUSATE SODIUM
     Dosage: UNK
  34. TRAZODONE [Concomitant]
     Active Substance: TRAZODONE HYDROCHLORIDE
     Dosage: UNK
  35. GLUCOPHAGE S [Concomitant]
     Dosage: UNK
  36. ZOLOFT [Suspect]
     Active Substance: SERTRALINE HYDROCHLORIDE
     Dosage: 150 MG, UNK
     Dates: start: 2007, end: 2012
  37. ZOLOFT [Suspect]
     Active Substance: SERTRALINE HYDROCHLORIDE
     Dosage: 150 MG, UNK
     Dates: start: 2015
  38. MIRTAZAPINE. [Concomitant]
     Active Substance: MIRTAZAPINE
     Dosage: 15 MG, 1X/DAY (1 TABLET BEFORE BEDTIME EVERY EVENING )
     Route: 048
  39. ORAJEL DENTURE [Concomitant]
     Dosage: 10 %, UNK (DIRECTED MOUTH/THROAT AS DIRECTED)
     Route: 048
  40. DESYREL [Concomitant]
     Active Substance: TRAZODONE HYDROCHLORIDE
     Dosage: 150 MG, UNK (AT BED TIME)
     Route: 048
  41. HUMULIN N [Concomitant]
     Active Substance: INSULIN HUMAN
     Dosage: 30 IU, UNK
     Route: 058
  42. NAPROXEN. [Concomitant]
     Active Substance: NAPROXEN
     Dosage: 375 MG, UNK
  43. TYLENOL [Concomitant]
     Active Substance: ACETAMINOPHEN
     Indication: HEADACHE
  44. METFORMIN [Concomitant]
     Active Substance: METFORMIN HYDROCHLORIDE
     Dosage: 1000 MG, 2X/DAY
  45. GLIPIZIDE XL [Concomitant]
     Active Substance: GLIPIZIDE
     Dosage: 10 MG, DAILY
  46. JANUVIA [Concomitant]
     Active Substance: SITAGLIPTIN PHOSPHATE
     Indication: DIABETES MELLITUS
     Dosage: 100 MG, 1X/DAY
     Route: 048
  47. LEVETIRACETAM. [Concomitant]
     Active Substance: LEVETIRACETAM
     Dosage: 500 MG, AS NEEDED
     Route: 048
  48. NTG [Concomitant]
     Active Substance: NITROGLYCERIN
     Dosage: UNK
  49. ALBUTEROL. [Concomitant]
     Active Substance: ALBUTEROL
     Dosage: UNK

REACTIONS (28)
  - Back pain [Unknown]
  - Amnesia [Unknown]
  - Hallucinations, mixed [Unknown]
  - Hypertension [Unknown]
  - Suicide attempt [Unknown]
  - Major depression [Unknown]
  - Coronary artery disease [Unknown]
  - General physical health deterioration [Unknown]
  - Seizure [Unknown]
  - Asthenia [Unknown]
  - Malaise [Not Recovered/Not Resolved]
  - Loss of consciousness [Unknown]
  - Antisocial personality disorder [Unknown]
  - Psychotic disorder [Unknown]
  - Disturbance in attention [Unknown]
  - Depressed mood [Unknown]
  - Mental disability [Unknown]
  - Bipolar I disorder [Unknown]
  - Hypercholesterolaemia [Unknown]
  - Hyperglycaemia [Unknown]
  - Suicide attempt [Unknown]
  - Dizziness [Unknown]
  - Sexual dysfunction [Unknown]
  - Vision blurred [Unknown]
  - Arthralgia [Unknown]
  - Schizophrenia [Unknown]
  - Hypertriglyceridaemia [Unknown]
  - Activities of daily living impaired [Unknown]

NARRATIVE: CASE EVENT DATE: 1996
